FAERS Safety Report 15245973 (Version 1)
Quarter: 2018Q3

REPORT INFORMATION
  Report Type: Report from Study
  Country: ES (occurrence: ES)
  Receive Date: 20180806
  Receipt Date: 20180806
  Transmission Date: 20181010
  Serious: Yes (Other)
  Sender: FDA-Public Use
  Company Number: ES-PFIZER INC-2018312110

PATIENT
  Age: 6 Year
  Sex: Male
  Weight: 19 kg

DRUGS (5)
  1. ACICLOVIR [Concomitant]
     Active Substance: ACYCLOVIR
     Indication: PROPHYLAXIS
     Dosage: 176 MG, 3X/DAY (EVERY 8 HOURS)
     Route: 048
     Dates: start: 20160628
  2. SEPTRIN PAEDIATRIC [Concomitant]
     Active Substance: SULFAMETHOXAZOLE\TRIMETHOPRIM
     Indication: PROPHYLAXIS
     Dosage: 2 ML, 2X/DAY (EVERY 12 HOURS)
     Route: 048
     Dates: start: 20160628
  3. ERWINASE /00143501/ [Suspect]
     Active Substance: ASPARAGINASE
     Indication: ACUTE LYMPHOCYTIC LEUKAEMIA
     Dosage: 15 KIU, EVERY 3 DAYS
     Route: 030
     Dates: start: 20170313, end: 20170331
  4. METHOTREXATE SODIUM. [Suspect]
     Active Substance: METHOTREXATE SODIUM
     Indication: ACUTE LYMPHOCYTIC LEUKAEMIA
     Dosage: 12.5 MG, WEEKLY
     Route: 048
     Dates: start: 20170214, end: 20170406
  5. MERCAPTOPURINE. [Suspect]
     Active Substance: MERCAPTOPURINE
     Indication: ACUTE LYMPHOCYTIC LEUKAEMIA
     Dosage: 18 MG, 1X/DAY
     Route: 048
     Dates: start: 20170214, end: 20170406

REACTIONS (2)
  - Epistaxis [Recovered/Resolved]
  - Pancytopenia [Recovered/Resolved]

NARRATIVE: CASE EVENT DATE: 20170406
